FAERS Safety Report 11074530 (Version 4)
Quarter: 2015Q3

REPORT INFORMATION
  Report Type: Report from Study
  Country: LU (occurrence: LU)
  Receive Date: 20150429
  Receipt Date: 20150721
  Transmission Date: 20151125
  Serious: Yes (Death, Hospitalization)
  Sender: FDA-Public Use
  Company Number: LU-ABBVIE-15P-098-1362515-00

PATIENT
  Sex: Male

DRUGS (5)
  1. DUODOPA [Suspect]
     Active Substance: CARBIDOPA\LEVODOPA
     Indication: PARKINSON^S DISEASE
     Route: 050
     Dates: start: 20070524, end: 20100608
  2. DUODOPA [Suspect]
     Active Substance: CARBIDOPA\LEVODOPA
     Dosage: DOSAGE CONTINUOUSLY MONITORED AND ADJUSTED
     Route: 050
     Dates: end: 20141020
  3. DUODOPA [Suspect]
     Active Substance: CARBIDOPA\LEVODOPA
     Dosage: AM DOSE=5.5ML, CD=1.8ML/H FOR 16HRS AND ED=2ML
     Route: 050
     Dates: start: 20141020, end: 20150505
  4. DUODOPA [Suspect]
     Active Substance: CARBIDOPA\LEVODOPA
     Dosage: AM:5.5ML; CD:1.9ML/H FOR 16HRS; ED: 2ML
     Route: 050
     Dates: start: 20150505
  5. DUODOPA [Suspect]
     Active Substance: CARBIDOPA\LEVODOPA
     Dosage: AM DOSE=4.5ML, CD=4ML/H FOR 16HRS AND ED=2ML
     Route: 050
     Dates: start: 20100608

REACTIONS (5)
  - Abnormal behaviour [Unknown]
  - General physical health deterioration [Fatal]
  - Daydreaming [Unknown]
  - Cognitive disorder [Unknown]
  - Cardiac failure [Fatal]
